FAERS Safety Report 9496146 (Version 1)
Quarter: 2013Q3

REPORT INFORMATION
  Report Type: Spontaneous
  Country: US (occurrence: US)
  Receive Date: 20130904
  Receipt Date: 20130904
  Transmission Date: 20140515
  Serious: Yes (Life-Threatening)
  Sender: FDA-Public Use
  Company Number: US-ROCHE-1267277

PATIENT
  Age: 63 Year
  Sex: Female

DRUGS (4)
  1. AVASTIN [Suspect]
     Indication: COLORECTAL CANCER RECURRENT
     Route: 042
     Dates: start: 201302
  2. OXALIPLATIN [Concomitant]
     Indication: COLORECTAL CANCER RECURRENT
     Route: 065
  3. 5-FU [Concomitant]
     Indication: COLORECTAL CANCER RECURRENT
     Route: 065
  4. LEUCOVORIN [Concomitant]
     Indication: COLORECTAL CANCER RECURRENT
     Route: 065

REACTIONS (9)
  - Pharyngeal oedema [Recovered/Resolved]
  - Dizziness [Unknown]
  - Dizziness [Not Recovered/Not Resolved]
  - Frequent bowel movements [Not Recovered/Not Resolved]
  - Nausea [Recovered/Resolved]
  - Anorectal discomfort [Recovering/Resolving]
  - Proctalgia [Recovering/Resolving]
  - Neuropathy peripheral [Not Recovered/Not Resolved]
  - Hypertension [Not Recovered/Not Resolved]
